FAERS Safety Report 9702627 (Version 1)
Quarter: 2013Q4

REPORT INFORMATION
  Report Type: Spontaneous
  Country: IN (occurrence: None)
  Receive Date: 20131120
  Receipt Date: 20131120
  Transmission Date: 20140711
  Serious: Yes (Other)
  Sender: FDA-Public Use
  Company Number: 2013P1021111

PATIENT
  Age: 30 Year
  Sex: Female

DRUGS (2)
  1. HYDROXYCHLOROQUINE [Suspect]
     Indication: SYSTEMIC LUPUS ERYTHEMATOSUS
     Dates: start: 200901
  2. CALCIUM [Concomitant]

REACTIONS (12)
  - Nephrotic syndrome [None]
  - Renal disorder [None]
  - Condition aggravated [None]
  - Arthralgia [None]
  - Anaemia [None]
  - Microcytosis [None]
  - Hypochromasia [None]
  - Anisocytosis [None]
  - Cardiomyopathy [None]
  - Pericardial effusion [None]
  - Lupus nephritis [None]
  - Lipidosis [None]
